FAERS Safety Report 6612738-6 (Version None)
Quarter: 2010Q1

REPORT INFORMATION
  Report Type: 
  Country: None (occurrence: None)
  Receive Date: 20100303
  Receipt Date: 20100222
  Transmission Date: 20100710
  Serious: Yes (Other)
  Sender: FDA-Public Use
  Company Number: US-ABBOTT-10P-163-0627984-00

PATIENT
  Sex: Female
  Weight: 66.738 kg

DRUGS (2)
  1. HUMIRA [Suspect]
     Indication: PSORIATIC ARTHROPATHY
     Dates: start: 20080101
  2. HUMIRA [Suspect]
     Indication: PSORIASIS

REACTIONS (5)
  - ACCIDENT [None]
  - MIGRAINE [None]
  - NERVE INJURY [None]
  - SKIN LACERATION [None]
  - VERTIGO [None]
